FAERS Safety Report 8247181-X (Version None)
Quarter: 2012Q1

REPORT INFORMATION
  Report Type: 
  Country: None (occurrence: None)
  Receive Date: 20120330
  Receipt Date: 20120326
  Transmission Date: 20120608
  Serious: Yes (Death, Other)
  Sender: FDA-Public Use
  Company Number: JP-ELI_LILLY_AND_COMPANY-JP201203002429

PATIENT
  Sex: Female
  Weight: 51.5 kg

DRUGS (11)
  1. GEMZAR [Suspect]
     Indication: ADENOCARCINOMA PANCREAS
     Dosage: 1000 MG, UNK
     Route: 042
     Dates: start: 20120207, end: 20120214
  2. SIGMART [Concomitant]
     Indication: CARDIAC FAILURE
     Dosage: 15 MG, UNK
  3. PLETAL [Concomitant]
     Indication: CARDIAC FAILURE
     Dosage: 200 MG, UNK
     Route: 048
  4. NOVORAPID [Concomitant]
     Indication: DIABETES MELLITUS
  5. ASPIRIN [Concomitant]
     Indication: CARDIAC FAILURE
     Dosage: 100 MG, UNK
     Route: 048
  6. MEXITIL [Concomitant]
     Indication: CARDIAC FAILURE
     Dosage: 150 MG, UNK
     Route: 048
  7. ETODOLAC [Concomitant]
     Dosage: 400 MG, UNK
     Route: 048
  8. NEO-MERCAZOLE TAB [Concomitant]
     Indication: BASEDOW'S DISEASE
     Dosage: 0.5 DF, UNK
     Route: 048
  9. RABEPRAZOLE SODIUM [Concomitant]
     Indication: CARDIAC FAILURE
     Dosage: 10 MG, UNK
     Route: 048
  10. ADALAT CR                               /SCH/ [Concomitant]
     Indication: CARDIAC FAILURE
     Dosage: 20 MG, UNK
     Route: 048
  11. TRICHLORMETHIAZIDE [Concomitant]
     Indication: CARDIAC FAILURE
     Dosage: 1 MG, UNK
     Route: 048

REACTIONS (3)
  - LUNG DISORDER [None]
  - BLOOD GLUCOSE INCREASED [None]
  - LIVER DISORDER [None]
